FAERS Safety Report 9909174 (Version 1)
Quarter: 2014Q1

REPORT INFORMATION
  Report Type: Spontaneous
  Country: US (occurrence: None)
  Receive Date: 20140214
  Receipt Date: 20140214
  Transmission Date: 20141002
  Serious: No
  Sender: FDA-Public Use
  Company Number: None

PATIENT
  Age: 61 Year
  Sex: Male

DRUGS (4)
  1. OXYCODONE [Suspect]
     Route: 048
  2. LACTASE [Concomitant]
  3. ATIVAN [Concomitant]
  4. MULTIVITAMIN [Concomitant]

REACTIONS (4)
  - Scratch [None]
  - Rash erythematous [None]
  - Pruritus [None]
  - Pruritus [None]
